FAERS Safety Report 6724028-1 (Version None)
Quarter: 2010Q2

REPORT INFORMATION
  Report Type: 
  Country: None (occurrence: None)
  Receive Date: 20100513
  Receipt Date: 20100505
  Transmission Date: 20101027
  Serious: Yes (Death, Hospitalization)
  Sender: FDA-Public Use
  Company Number: A0858589A

PATIENT
  Age: 60 Year
  Sex: Male

DRUGS (6)
  1. AVANDIA [Suspect]
     Dosage: 4MG TWICE PER DAY
     Route: 048
     Dates: start: 20060201, end: 20070501
  2. INSULIN [Concomitant]
  3. LIPITOR [Concomitant]
  4. METOPROLOL TARTRATE [Concomitant]
  5. DILTIAZEM HCL [Concomitant]
  6. BENICAR [Concomitant]

REACTIONS (4)
  - AORTIC STENOSIS [None]
  - CARDIAC ARREST [None]
  - CARDIAC FAILURE CONGESTIVE [None]
  - MYOCARDIAL INFARCTION [None]
